FAERS Safety Report 19949139 (Version 8)
Quarter: 2022Q1

REPORT INFORMATION
  Report Type: Report from Study
  Country: CA (occurrence: CA)
  Receive Date: 20211013
  Receipt Date: 20220307
  Transmission Date: 20220423
  Serious: Yes (Other)
  Sender: FDA-Public Use
  Company Number: CA-BAUSCH-BL-2021-015153

PATIENT

DRUGS (7)
  1. CONTRAVE [Suspect]
     Active Substance: BUPROPION HYDROCHLORIDE\NALTREXONE HYDROCHLORIDE
     Indication: Weight control
     Dosage: 90 MG/8 MG, 1 TABLET IN THE MORNING, WEEK 1
     Route: 048
     Dates: start: 20210426, end: 2021
  2. CONTRAVE [Suspect]
     Active Substance: BUPROPION HYDROCHLORIDE\NALTREXONE HYDROCHLORIDE
     Dosage: 90 MG/8 MG, 2 TAB Q AM, 2 TAB Q PM
     Route: 048
     Dates: start: 20210517
  3. CONTRAVE [Suspect]
     Active Substance: BUPROPION HYDROCHLORIDE\NALTREXONE HYDROCHLORIDE
     Dosage: 90 MG/8 MG, 1 TAB Q AM, 1 TAB Q PM
     Route: 048
     Dates: start: 20210930
  4. LIPITOR [Concomitant]
     Active Substance: ATORVASTATIN CALCIUM
     Indication: Blood cholesterol increased
     Dosage: (1 IN 1 D)
     Route: 048
  5. DEXILANT [Concomitant]
     Active Substance: DEXLANSOPRAZOLE
     Indication: Gastrooesophageal reflux disease
     Dosage: CAPSULE, DELAYED RELEASE (1 IN 24 HR)
     Route: 048
  6. ASPIRIN [Concomitant]
     Active Substance: ASPIRIN
     Indication: Product used for unknown indication
     Dosage: UNK
     Route: 048
  7. COLACE [Concomitant]
     Active Substance: DOCUSATE SODIUM
     Indication: Constipation
     Dosage: 4 DOSAGE FORMS (2 DOSAGE FORMS, 1 IN 12 HR)
     Route: 048

REACTIONS (12)
  - Cholelithiasis [Recovered/Resolved]
  - Oedema peripheral [Not Recovered/Not Resolved]
  - Gastrooesophageal reflux disease [Not Recovered/Not Resolved]
  - COVID-19 [Not Recovered/Not Resolved]
  - Burns second degree [Not Recovered/Not Resolved]
  - Feeding disorder [Recovered/Resolved]
  - Hypersomnia [Not Recovered/Not Resolved]
  - Hunger [Not Recovered/Not Resolved]
  - Cough [Recovered/Resolved]
  - Constipation [Not Recovered/Not Resolved]
  - Dizziness [Not Recovered/Not Resolved]
  - Therapeutic product effect incomplete [Unknown]

NARRATIVE: CASE EVENT DATE: 20210101
